FAERS Safety Report 6309695-9 (Version None)
Quarter: 2009Q3

REPORT INFORMATION
  Report Type: 
  Country: None (occurrence: None)
  Receive Date: 20090811
  Receipt Date: 20090630
  Transmission Date: 20100115
  Serious: No
  Sender: FDA-Public Use
  Company Number: 1000007148

PATIENT
  Age: 25 Year
  Sex: Female

DRUGS (1)
  1. SAVELLA [Suspect]

REACTIONS (2)
  - FATIGUE [None]
  - FLUSHING [None]
